FAERS Safety Report 4705613-5 (Version None)
Quarter: 2005Q3

REPORT INFORMATION
  Report Type: 
  Country: None (occurrence: None)
  Receive Date: 20050701
  Receipt Date: 20050627
  Transmission Date: 20060218
  Serious: Yes (Hospitalization)
  Sender: FDA-Public Use
  Company Number: US-BOEHRINGER INGELHEIM PHARMACEUTICALS, INC.-2005-BP-10873BP

PATIENT
  Age: 71 Year
  Sex: Female

DRUGS (2)
  1. COMBIVENT [Suspect]
     Indication: PNEUMONIA
     Dosage: 72MCG/412MCG
     Route: 055
     Dates: start: 20050308
  2. ADVAIR DISKUS 100/50 [Suspect]
     Indication: PNEUMONIA

REACTIONS (3)
  - CARDIAC FAILURE CONGESTIVE [None]
  - DYSGEUSIA [None]
  - HAIR GROWTH ABNORMAL [None]
